FAERS Safety Report 22065490 (Version 1)
Quarter: 2023Q1

REPORT INFORMATION
  Report Type: Report from Study
  Country: IL (occurrence: IL)
  Receive Date: 20230306
  Receipt Date: 20230306
  Transmission Date: 20230418
  Serious: Yes (Hospitalization)
  Sender: FDA-Public Use
  Company Number: IL-JNJFOC-20210957276

PATIENT
  Age: 49 Year
  Sex: Female
  Weight: 72 kg

DRUGS (4)
  1. PONESIMOD [Suspect]
     Active Substance: PONESIMOD
     Indication: Relapsing multiple sclerosis
     Route: 048
     Dates: start: 20190226
  2. COVID-19 VACCINE [Concomitant]
     Dates: start: 20210130, end: 20210130
  3. COVID-19 VACCINE [Concomitant]
     Dates: start: 20210220, end: 20210220
  4. COVID-19 VACCINE [Concomitant]
     Dates: start: 20210826, end: 20210826

REACTIONS (1)
  - COVID-19 [Recovering/Resolving]

NARRATIVE: CASE EVENT DATE: 20210919
